FAERS Safety Report 7389050-3 (Version None)
Quarter: 2011Q2

REPORT INFORMATION
  Report Type: 
  Country: None (occurrence: None)
  Receive Date: 20110401
  Receipt Date: 20110323
  Transmission Date: 20111010
  Serious: Yes (Other)
  Sender: FDA-Public Use
  Company Number: US-AMGEN-KDC432579

PATIENT
  Age: 68 Year
  Sex: Female

DRUGS (6)
  1. TAXOL [Concomitant]
     Dosage: 120 MG, QWK
     Dates: start: 20100219, end: 20100910
  2. CALCIUM [Concomitant]
     Dosage: 500 MG, QD
     Route: 048
     Dates: start: 20100802
  3. DENOSUMAB [Suspect]
     Indication: METASTASES TO BONE
     Dosage: UNK UNK, Q4WK
     Route: 058
     Dates: start: 20070802, end: 20100723
  4. VITAMIN D [Concomitant]
     Dosage: 400 IU, QD
     Route: 048
     Dates: start: 20100802
  5. DECADRON [Concomitant]
     Dosage: UNK
     Dates: start: 20100210, end: 20100910
  6. XANAX [Concomitant]
     Dosage: .25 MG, PRN
     Dates: start: 20071025

REACTIONS (1)
  - OSTEONECROSIS OF JAW [None]
